FAERS Safety Report 8231428-X (Version None)
Quarter: 2012Q1

REPORT INFORMATION
  Report Type: 
  Country: None (occurrence: None)
  Receive Date: 20120323
  Receipt Date: 20120315
  Transmission Date: 20120608
  Serious: Yes (Other)
  Sender: FDA-Public Use
  Company Number: DE-SANOFI-AVENTIS-2012SA018227

PATIENT
  Age: 49 Year
  Sex: Female
  Weight: 70 kg

DRUGS (2)
  1. DOCETAXEL [Suspect]
     Dosage: FORM: VIALS
     Route: 042
     Dates: start: 20101228
  2. BEVACIZUMAB [Suspect]
     Dosage: FORM: VIALS
     Route: 042
     Dates: start: 20101228

REACTIONS (2)
  - HYPERTENSION [None]
  - THROMBOSIS IN DEVICE [None]
